FAERS Safety Report 4748921-4 (Version None)
Quarter: 2005Q3

REPORT INFORMATION
  Report Type: 
  Country: None (occurrence: None)
  Receive Date: 20050819
  Receipt Date: 20050721
  Transmission Date: 20060218
  Serious: Yes (Death)
  Sender: FDA-Public Use
  Company Number: PL-SANOFI-SYNTHELABO-F01200501308

PATIENT
  Sex: Female
  Weight: 71 kg

DRUGS (5)
  1. CLOPIDOGREL BISULFATE [Suspect]
     Indication: ACUTE CORONARY SYNDROME
     Dosage: UNK
     Route: 065
     Dates: start: 20050709, end: 20050710
  2. ASPIRIN [Concomitant]
     Indication: MYOCARDIAL INFARCTION
     Dosage: UNK
     Dates: start: 20050709, end: 20050710
  3. OMEPRAZOLE [Concomitant]
     Indication: GASTROINTESTINAL DISORDER
     Dosage: UNK
     Dates: start: 20050709, end: 20050710
  4. INSULIN [Concomitant]
     Indication: DIABETES MELLITUS
     Dosage: UNK
     Dates: start: 20050709, end: 20050710
  5. MORPHINE [Concomitant]
     Indication: ANGINA PECTORIS
     Dosage: UNK
     Dates: start: 20050709, end: 20050710

REACTIONS (2)
  - CARDIAC ARREST [None]
  - CARDIAC DISORDER [None]
